FAERS Safety Report 9649455 (Version 3)
Quarter: 2014Q1

REPORT INFORMATION
  Report Type: Not Available
  Country: GB (occurrence: GB)
  Receive Date: 20131028
  Receipt Date: 20140303
  Transmission Date: 20141002
  Serious: Yes (Disabling)
  Sender: FDA-Public Use
  Company Number: GB-IAC JAPAN XML-GBR-2013-0016118

PATIENT
  Age: 73 Year
  Sex: Female

DRUGS (2)
  1. BUTRANS 5MG TRANSDERMAL PATCH [Suspect]
     Indication: BACK PAIN
     Dosage: 5 MCG, Q1H
     Route: 062
     Dates: start: 201304, end: 20130930
  2. AMITRIPTYLINE [Concomitant]
     Indication: NEURALGIA
     Dosage: 20 MG, UNK
     Route: 048

REACTIONS (2)
  - Skin fissures [Not Recovered/Not Resolved]
  - Blister [Not Recovered/Not Resolved]
